FAERS Safety Report 8806029 (Version 10)
Quarter: 2013Q4

REPORT INFORMATION
  Report Type: Spontaneous
  Country: US (occurrence: US)
  Receive Date: 20120925
  Receipt Date: 20131120
  Transmission Date: 20140711
  Serious: Yes (Hospitalization, Other)
  Sender: FDA-Public Use
  Company Number: US-PFIZER INC-2012232550

PATIENT
  Age: 72 Year
  Sex: Male
  Weight: 98.41 kg

DRUGS (14)
  1. AMBIEN [Concomitant]
     Indication: INSOMNIA
     Dosage: UNK
  2. MAGIC MOUTHWASH [Concomitant]
     Dosage: UNK
  3. TRIAMCINOLONE [Concomitant]
     Indication: ORAL PAIN
     Dosage: UNK
     Route: 061
  4. SUTENT [Suspect]
     Indication: METASTATIC RENAL CELL CARCINOMA
     Dosage: 50 MG, ONCE A DAY, 4 WEEKS ON AND 2 WEEKS OFF
     Route: 048
     Dates: start: 20120910, end: 20120928
  5. SUTENT [Suspect]
     Dosage: 37.5 MG, CYCLIC (FOR 28 DAYS ON, 14 OFF)
     Dates: start: 20130118
  6. CARDIZEM [Concomitant]
     Indication: HYPERTENSION
     Dosage: 300 MG, UNK
  7. LISINOPRIL [Concomitant]
     Indication: HYPERTENSION
     Dosage: 2.5 MG, UNK
  8. FENTANYL [Concomitant]
     Indication: PAIN
     Dosage: 25 UG/HR, UNK
     Route: 062
  9. ASPIRIN [Concomitant]
     Dosage: 81 MG, 1X/DAY
  10. DEXAMETHASONE [Concomitant]
     Dosage: 4 MG, UNK
  11. REMERON [Concomitant]
     Indication: DEPRESSION
     Dosage: UNK
  12. TERAZOSIN [Concomitant]
     Indication: PROSTATOMEGALY
     Dosage: UNK
  13. DEPO-TESTOSTERONE [Concomitant]
     Dosage: UNK, EVERY 3 MONTHS
  14. LOVASTATIN [Concomitant]
     Indication: HYPERLIPIDAEMIA
     Dosage: 20 MG, UNK

REACTIONS (19)
  - Gastric ulcer haemorrhage [Unknown]
  - Confusional state [Unknown]
  - Asthenia [Unknown]
  - Anaemia [Unknown]
  - Blood cholesterol increased [Unknown]
  - Subcutaneous haematoma [Not Recovered/Not Resolved]
  - Injury [Unknown]
  - Thermal burn [Unknown]
  - Immune system disorder [Unknown]
  - Dysgeusia [Recovering/Resolving]
  - Palmar-plantar erythrodysaesthesia syndrome [Not Recovered/Not Resolved]
  - Oral pain [Recovering/Resolving]
  - White blood cell count decreased [Unknown]
  - Pain in extremity [Recovered/Resolved]
  - Diarrhoea [Unknown]
  - Change of bowel habit [Unknown]
  - Cough [Unknown]
  - Disease progression [Unknown]
  - Metastatic renal cell carcinoma [Unknown]
